FAERS Safety Report 9548951 (Version 2)
Quarter: 2013Q3

REPORT INFORMATION
  Report Type: Spontaneous
  Country: IE (occurrence: IE)
  Receive Date: 20130924
  Receipt Date: 20130924
  Transmission Date: 20140515
  Serious: Yes (Other)
  Sender: FDA-Public Use
  Company Number: PHFR2013IE002552

PATIENT
  Age: 34 Year
  Sex: Male

DRUGS (5)
  1. CLOZARIL [Suspect]
     Indication: SCHIZOPHRENIA
     Dosage: UNK UKN, UNK
     Route: 048
     Dates: start: 20080616
  2. CLOZARIL [Suspect]
     Dosage: 225 MG MANE AND 425 MG NOCTE
  3. EPILIM CHRONO [Concomitant]
     Dosage: 300 MG, UNK
     Route: 048
  4. QUETIAPINE [Concomitant]
     Indication: SCHIZOPHRENIA
     Dosage: 450 MG, UNK
     Route: 048
  5. ESOMEPRAZOLE [Concomitant]
     Dosage: 20 MG, UNK
     Route: 048

REACTIONS (1)
  - Haemoglobin decreased [Recovered/Resolved]
